FAERS Safety Report 10067452 (Version 1)
Quarter: 2014Q2

REPORT INFORMATION
  Report Type: Spontaneous
  Country: FR (occurrence: None)
  Receive Date: 20140407
  Receipt Date: 20140407
  Transmission Date: 20141212
  Serious: Yes (Hospitalization)
  Sender: FDA-Public Use
  Company Number: 2267532

PATIENT
  Age: 66 Year
  Sex: Female

DRUGS (6)
  1. OXALIPLATIN [Suspect]
     Indication: COLON CANCER
     Route: 042
     Dates: start: 20140221, end: 20140221
  2. ELVORINE [Concomitant]
  3. ERBITUX [Concomitant]
  4. ZOPHREN [Concomitant]
  5. SOLUMEDROL [Concomitant]
  6. POLARAMINE [Concomitant]

REACTIONS (4)
  - Chest discomfort [None]
  - Hot flush [None]
  - Infusion related reaction [None]
  - Erythema [None]
